FAERS Safety Report 14173390 (Version 1)
Quarter: 2017Q4

REPORT INFORMATION
  Report Type: Spontaneous
  Country: US (occurrence: None)
  Receive Date: 20171109
  Receipt Date: 20171109
  Transmission Date: 20180321
  Serious: Yes (Other)
  Sender: FDA-Public Use
  Company Number: None

PATIENT
  Sex: Female
  Weight: 70.31 kg

DRUGS (3)
  1. PRENATAL VITAMINS [Concomitant]
     Active Substance: VITAMINS
  2. IUD NOS [Concomitant]
     Active Substance: COPPER OR LEVONORGESTREL
  3. MIRENA [Suspect]
     Active Substance: LEVONORGESTREL

REACTIONS (4)
  - Uterine perforation [None]
  - Device dislocation [None]
  - Complication of device insertion [None]
  - Procedural pain [None]

NARRATIVE: CASE EVENT DATE: 20171020
